FAERS Safety Report 14146152 (Version 4)
Quarter: 2017Q4

REPORT INFORMATION
  Report Type: Other
  Country: HR (occurrence: HR)
  Receive Date: 20171031
  Receipt Date: 20171229
  Transmission Date: 20180321
  Serious: Yes (Other)
  Sender: FDA-Public Use
  Company Number: HR-CELLTRION INC.-2017HR014800

PATIENT

DRUGS (6)
  1. INFLECTRA [Suspect]
     Active Substance: INFLIXIMAB-DYYB
     Indication: PRODUCT USED FOR UNKNOWN INDICATION
     Dosage: 300 MG UNK
     Route: 042
     Dates: start: 20160404
  2. SIMPONI ARIA [Suspect]
     Active Substance: GOLIMUMAB
     Indication: ANKYLOSING SPONDYLITIS
     Dosage: UNK
     Route: 058
     Dates: start: 20140711, end: 201612
  3. CIPRINOL                           /00697202/ [Concomitant]
     Route: 065
  4. KLAVOCIN                           /00852501/ [Concomitant]
  5. INFLECTRA [Suspect]
     Active Substance: INFLIXIMAB-DYYB
     Dosage: 300 MG UNK
     Route: 042
     Dates: start: 20160602
  6. INFLECTRA [Suspect]
     Active Substance: INFLIXIMAB-DYYB
     Dosage: 300 MG UNK
     Route: 042
     Dates: start: 20160418

REACTIONS (6)
  - Drug dose omission [Unknown]
  - Intestinal stenosis [Unknown]
  - Drug ineffective [Unknown]
  - Joint swelling [Unknown]
  - Crohn^s disease [Unknown]
  - Disseminated tuberculosis [Unknown]

NARRATIVE: CASE EVENT DATE: 2016
